FAERS Safety Report 24649028 (Version 3)
Quarter: 2025Q1

REPORT INFORMATION
  Report Type: Spontaneous
  Country: US (occurrence: US)
  Receive Date: 20241121
  Receipt Date: 20250109
  Transmission Date: 20250408
  Serious: No
  Sender: SANOFI AVENTIS
  Company Number: US-SA-2024SA339380

PATIENT
  Age: 84 Year
  Sex: Male
  Weight: 68.64 kg

DRUGS (10)
  1. KEVZARA [Suspect]
     Active Substance: SARILUMAB
     Indication: Illness
     Dosage: 200 MG, QOW
     Route: 058
     Dates: start: 20241010
  2. KEVZARA [Suspect]
     Active Substance: SARILUMAB
     Indication: Arthritis
  3. PREDNISONE [Concomitant]
     Active Substance: PREDNISONE
  4. ALBUTEROL SULFATE [Concomitant]
     Active Substance: ALBUTEROL SULFATE
  5. LISINOPRIL [Concomitant]
     Active Substance: LISINOPRIL
  6. EZETIMIBE [Concomitant]
     Active Substance: EZETIMIBE
  7. ATORVASTATIN CALCIUM [Concomitant]
     Active Substance: ATORVASTATIN CALCIUM
  8. ATENOLOL [Concomitant]
     Active Substance: ATENOLOL
  9. ASPIRIN [Concomitant]
     Active Substance: ASPIRIN
  10. RANOLAZINE [Concomitant]
     Active Substance: RANOLAZINE

REACTIONS (6)
  - Dizziness [Unknown]
  - Fall [Recovered/Resolved]
  - Pollakiuria [Recovered/Resolved]
  - Limb injury [Unknown]
  - Drug ineffective [Unknown]
  - Product use in unapproved indication [Unknown]

NARRATIVE: CASE EVENT DATE: 20240101
